FAERS Safety Report 6237776-7 (Version None)
Quarter: 2009Q2

REPORT INFORMATION
  Report Type: 
  Country: None (occurrence: None)
  Receive Date: 20090618
  Receipt Date: 20090604
  Transmission Date: 20091009
  Serious: Yes (Hospitalization)
  Sender: FDA-Public Use
  Company Number: 2009AL003726

PATIENT
  Age: 91 Year
  Sex: Female

DRUGS (10)
  1. DIGOXIN [Suspect]
     Dosage: 0.25MG, DAILY, PO
     Route: 048
  2. SPIRIVA [Concomitant]
  3. PRAVACHOL [Concomitant]
  4. ASPIRIN [Concomitant]
  5. CIPRO [Concomitant]
  6. FEMARA [Concomitant]
  7. ARCURI [Concomitant]
  8. LUTEIN [Concomitant]
  9. NITROGLYCERIN [Concomitant]
  10. STOOL SOFTENER [Concomitant]

REACTIONS (5)
  - ASTHENIA [None]
  - BLOOD PRESSURE SYSTOLIC DECREASED [None]
  - DYSPNOEA [None]
  - SYNCOPE [None]
  - URINARY TRACT INFECTION [None]
